FAERS Safety Report 10287969 (Version 1)
Quarter: 2014Q3

REPORT INFORMATION
  Report Type: Report from Study
  Country: US (occurrence: US)
  Receive Date: 20140709
  Receipt Date: 20140709
  Transmission Date: 20150326
  Serious: Yes (Life-Threatening, Hospitalization, Other)
  Sender: FDA-Public Use
  Company Number: US-PURDUE-USA-2014-0115375

PATIENT
  Age: 76 Year
  Sex: Male
  Weight: 48 kg

DRUGS (14)
  1. EFFEXOR [Suspect]
     Active Substance: VENLAFAXINE HYDROCHLORIDE
     Indication: MAJOR DEPRESSION
     Dosage: 37.5 MG, DAILY
     Route: 048
     Dates: start: 20140126
  2. NORCO [Suspect]
     Active Substance: ACETAMINOPHEN\HYDROCODONE BITARTRATE
     Indication: PAIN
     Dosage: UNK
     Route: 048
     Dates: end: 201404
  3. TEMAZEPAM. [Suspect]
     Active Substance: TEMAZEPAM
     Indication: INSOMNIA
     Dosage: 30 MG, DAILY
     Dates: start: 20131210
  4. E7080 (HOPE) (INVESTIGATIONAL DRUG) [Suspect]
     Active Substance: LENVATINIB
     Indication: PRODUCT USED FOR UNKNOWN INDICATION
     Dosage: 8 MG, DAILY
     Dates: start: 20131218, end: 20140124
  5. LYRICA [Suspect]
     Active Substance: PREGABALIN
     Indication: PAIN
     Dosage: UNKNOWN
     Route: 048
     Dates: end: 201404
  6. LYRICA [Suspect]
     Active Substance: PREGABALIN
     Dosage: 50 MG, TID
     Route: 048
     Dates: start: 20140419, end: 20140420
  7. GABAPENTIN. [Concomitant]
     Active Substance: GABAPENTIN
     Indication: NEUROPATHY PERIPHERAL
     Dosage: 15 MG, PRN
     Dates: start: 2008
  8. AVODART [Concomitant]
     Active Substance: DUTASTERIDE
     Indication: BENIGN PROSTATIC HYPERPLASIA
     Dosage: 0.5 MG, DAILY
     Route: 048
     Dates: start: 2010
  9. OXYCONTIN [Suspect]
     Active Substance: OXYCODONE HYDROCHLORIDE
     Dosage: 15 MG, TID PRN
     Route: 048
     Dates: start: 20140102
  10. NORCO [Suspect]
     Active Substance: ACETAMINOPHEN\HYDROCODONE BITARTRATE
     Dosage: 5-325 MG EVERY 6 HOURS AS NEEDED
     Route: 048
     Dates: start: 20140417
  11. OXYCONTIN [Suspect]
     Active Substance: OXYCODONE HYDROCHLORIDE
     Indication: PAIN
     Dosage: 30 MG, Q4H PRN
     Route: 048
     Dates: start: 20131210
  12. SEROQUEL [Suspect]
     Active Substance: QUETIAPINE FUMARATE
     Indication: PRODUCT USED FOR UNKNOWN INDICATION
     Dosage: UNKNOWN
     Route: 048
  13. NORVASC [Concomitant]
     Active Substance: AMLODIPINE BESYLATE
     Indication: HYPERTENSION
     Dosage: 10 MG, DAILY
  14. E7080 (HOPE) (INVESTIGATIONAL DRUG) [Suspect]
     Active Substance: LENVATINIB
     Dosage: 8 MG, DAILY
     Dates: start: 20140204

REACTIONS (12)
  - Major depression [Recovered/Resolved]
  - Fall [Unknown]
  - Suicide attempt [Recovered/Resolved]
  - Respiratory depression [Unknown]
  - Asthenia [Unknown]
  - Pain [Unknown]
  - Lethargy [Unknown]
  - Abdominal discomfort [Unknown]
  - Intentional overdose [Recovered/Resolved]
  - Rib fracture [Unknown]
  - Mental status changes [Unknown]
  - Syncope [Recovered/Resolved]

NARRATIVE: CASE EVENT DATE: 20140124
